FAERS Safety Report 12212845 (Version 2)
Quarter: 2016Q1

REPORT INFORMATION
  Report Type: Spontaneous
  Country: US (occurrence: US)
  Receive Date: 20160328
  Receipt Date: 20160329
  Transmission Date: 20160526
  Serious: No
  Sender: FDA-Public Use
  Company Number: US-ASTRAZENECA-2014SE20378

PATIENT
  Age: 52 Year
  Sex: Male
  Weight: 108.8 kg

DRUGS (3)
  1. EKLIRA [Suspect]
     Active Substance: ACLIDINIUM BROMIDE
     Dosage: 400MCG ONE INHALATION TWICE DAILY
     Route: 055
  2. BYDUREON [Suspect]
     Active Substance: EXENATIDE
     Indication: TYPE 2 DIABETES MELLITUS
     Dosage: UNK
     Route: 058
  3. METFORMIN [Concomitant]
     Active Substance: METFORMIN HYDROCHLORIDE
     Dosage: UNK TWO TIMES A DAY

REACTIONS (3)
  - Underdose [Unknown]
  - Product quality issue [Unknown]
  - Injection site haemorrhage [Unknown]
